FAERS Safety Report 4984325-7 (Version None)
Quarter: 2006Q2

REPORT INFORMATION
  Report Type: 
  Country: None (occurrence: None)
  Receive Date: 20060427
  Receipt Date: 20060417
  Transmission Date: 20061013
  Serious: Yes (Other)
  Sender: FDA-Public Use
  Company Number: PHHO2006CZ06395

PATIENT
  Age: 69 Year
  Sex: Female

DRUGS (7)
  1. ZOMETA [Suspect]
     Indication: MULTIPLE MYELOMA
     Dosage: 4 MG, QMO
     Route: 042
     Dates: end: 20060331
  2. INTRON A [Concomitant]
     Indication: MULTIPLE MYELOMA
     Route: 058
     Dates: start: 20051021, end: 20060331
  3. THALIDOMIDE [Concomitant]
     Indication: MULTIPLE MYELOMA
     Dosage: 100 MG, QD
     Route: 048
     Dates: start: 20051021, end: 20060331
  4. MILURIT [Concomitant]
     Dosage: 100 MG, UNK
     Route: 048
  5. CALTRATE [Concomitant]
     Indication: PROPHYLAXIS
     Route: 048
  6. VASCARDIN [Concomitant]
     Indication: HYPERTENSION
     Dosage: 100 MG, UNK
     Route: 048
  7. CLOZARIL [Concomitant]
     Indication: HYPERTENSION
     Dosage: 25 MG, UNK
     Route: 048

REACTIONS (2)
  - BONE DISORDER [None]
  - OSTEONECROSIS [None]
